FAERS Safety Report 10483645 (Version 1)
Quarter: 2014Q3

REPORT INFORMATION
  Report Type: Spontaneous
  Country: US (occurrence: None)
  Receive Date: 20140929
  Receipt Date: 20140929
  Transmission Date: 20150326
  Serious: Yes (Other)
  Sender: FDA-Public Use
  Company Number: None

PATIENT
  Age: 21 Year
  Sex: Female
  Weight: 69.85 kg

DRUGS (1)
  1. MIRENA [Suspect]
     Active Substance: LEVONORGESTREL
     Indication: CONTRACEPTION
     Dosage: FIVE YEARS, VAGINAL
     Route: 067
     Dates: start: 20130416, end: 20140923

REACTIONS (4)
  - Vulvovaginal pruritus [None]
  - Abdominal pain [None]
  - Abdominal discomfort [None]
  - Urticaria [None]

NARRATIVE: CASE EVENT DATE: 20140923
